FAERS Safety Report 8801843 (Version 2)
Quarter: 2012Q4

REPORT INFORMATION
  Report Type: Report from Study
  Country: IE (occurrence: IE)
  Receive Date: 20120921
  Receipt Date: 20121010
  Transmission Date: 20130627
  Serious: Yes (Hospitalization)
  Sender: FDA-Public Use
  Company Number: IE-CELGENEUS-229-21880-12090855

PATIENT
  Age: 67 Year
  Sex: Male
  Weight: 84.4 kg

DRUGS (26)
  1. REVLIMID [Suspect]
     Indication: MULTIPLE MYELOMA
     Dosage: 20 Milligram
     Route: 048
     Dates: start: 20110707, end: 20110727
  2. REVLIMID [Suspect]
     Dosage: 20 Milligram
     Route: 048
     Dates: start: 20110805, end: 20110825
  3. REVLIMID [Suspect]
     Dosage: 20 Milligram
     Route: 048
     Dates: start: 20110903, end: 20110923
  4. REVLIMID [Suspect]
     Dosage: 20 Milligram
     Route: 048
     Dates: start: 20110903, end: 20110923
  5. REVLIMID [Suspect]
     Dosage: 20 Milligram
     Route: 048
     Dates: start: 20111002, end: 20111022
  6. REVLIMID [Suspect]
     Dosage: 20 Milligram
     Route: 048
     Dates: start: 20111031, end: 20111120
  7. REVLIMID [Suspect]
     Dosage: 20 Milligram
     Route: 048
     Dates: start: 20111129, end: 20111219
  8. REVLIMID [Suspect]
     Dosage: 20 Milligram
     Route: 048
     Dates: start: 20111228, end: 20120117
  9. REVLIMID [Suspect]
     Dosage: 20 Milligram
     Route: 048
     Dates: start: 20120126, end: 20120215
  10. REVLIMID [Suspect]
     Dosage: 20 Milligram
     Route: 048
     Dates: start: 20120224, end: 20120315
  11. DEXAMETHASONE [Concomitant]
     Indication: MULTIPLE MYELOMA
     Route: 048
     Dates: start: 20110315, end: 20110405
  12. DEXAMETHASONE [Concomitant]
     Route: 048
     Dates: start: 20110426, end: 20110517
  13. DEXAMETHASONE [Concomitant]
     Route: 048
     Dates: start: 20110526, end: 20110721
  14. DIFLUCAN [Concomitant]
     Indication: ANTIFUNGAL PROPHYLAXIS
     Dosage: 50 Milligram
     Route: 048
     Dates: start: 20110819
  15. FAMCICLOVIR [Concomitant]
     Indication: ANTIVIRAL PROPHYLAXIS
     Dosage: 500 Milligram
     Route: 048
     Dates: start: 20120819
  16. ISTIN [Concomitant]
     Indication: HYPERTENSION
     Dosage: 5 Milligram
     Route: 048
     Dates: start: 2005
  17. AUGMENTIN [Concomitant]
     Indication: RESPIRATORY INFECTION
     Dosage: 1875 Milligram
     Route: 048
     Dates: start: 20110714
  18. ZIMOVANE [Concomitant]
     Indication: DISORDER SLEEP
     Dosage: 7.5 Milligram
     Route: 048
     Dates: start: 20120718
  19. TRAMADOL [Concomitant]
     Indication: PAIN
     Dosage: 150 Milligram
     Route: 048
     Dates: start: 20110718
  20. SENNA [Concomitant]
     Indication: CONSTIPATION
     Dosage: 1 or 2
     Route: 048
     Dates: start: 20110819
  21. LACTULOSE [Concomitant]
     Indication: CONSTIPATION
     Dosage: 15 milliliter
     Route: 048
     Dates: start: 20110819
  22. LYRICA [Concomitant]
     Indication: PAIN
     Route: 048
     Dates: start: 20110728
  23. CLEXANE [Concomitant]
     Indication: PROPHYLACTIC
     Dosage: 40 Milligram
     Route: 058
     Dates: start: 20110526
  24. MOTILLIUM [Concomitant]
     Indication: PROPHYLAXIS
     Dosage: 20 Milligram
     Route: 048
     Dates: start: 20110526
  25. ZOFRAN [Concomitant]
     Indication: DRUG USE FOR UNKNOWN INDICATION
     Dosage: 8 Milligram
     Route: 048
     Dates: start: 20110526
  26. ZOTON [Concomitant]
     Indication: DRUG USE FOR UNKNOWN INDICATION
     Dosage: 4.2857 Milligram
     Route: 048
     Dates: start: 20110526

REACTIONS (1)
  - Urinary tract infection [Recovered/Resolved]
